FAERS Safety Report 13847188 (Version 1)
Quarter: 2017Q3

REPORT INFORMATION
  Report Type: Spontaneous
  Country: US (occurrence: US)
  Receive Date: 20170808
  Receipt Date: 20170808
  Transmission Date: 20171127
  Serious: No
  Sender: FDA-Public Use
  Company Number: GXBR2017US001640

PATIENT
  Sex: Male

DRUGS (1)
  1. SWIM-EAR [Suspect]
     Active Substance: ISOPROPYL ALCOHOL
     Indication: EAR CONGESTION
     Route: 001

REACTIONS (1)
  - Ear pain [Unknown]
